FAERS Safety Report 20451148 (Version 3)
Quarter: 2022Q2

REPORT INFORMATION
  Report Type: Report from Study
  Country: TR (occurrence: TR)
  Receive Date: 20220209
  Receipt Date: 20220418
  Transmission Date: 20220720
  Serious: Yes (Hospitalization, Other)
  Sender: FDA-Public Use
  Company Number: TR-AMGEN-TURNI2022019548

PATIENT
  Age: 53 Year
  Sex: Male

DRUGS (2)
  1. AMG-510 [Suspect]
     Active Substance: AMG-510
     Indication: Non-small cell lung cancer metastatic
     Dosage: 960 MILLIGRAM, QD
     Route: 048
     Dates: start: 20211214
  2. AMG-510 [Suspect]
     Active Substance: AMG-510
     Indication: K-ras gene mutation
     Dosage: 480 MILLIGRAM, QD
     Route: 048
     Dates: start: 20220225, end: 20220317

REACTIONS (2)
  - Pancreatitis acute [Recovered/Resolved]
  - Hepatotoxicity [Unknown]

NARRATIVE: CASE EVENT DATE: 20220131
